FAERS Safety Report 17283087 (Version 1)
Quarter: 2020Q1

REPORT INFORMATION
  Report Type: Spontaneous
  Country: US (occurrence: US)
  Receive Date: 20191227
  Receipt Date: 20191227
  Transmission Date: 20200409
  Serious: No
  Sender: FDA-Public Use
  Company Number: None

PATIENT
  Age: 68 Year
  Sex: Male

DRUGS (1)
  1. VANCOMYCIN (VANCOMYCIN HCL 3MG/ML/NACL 0.9% INJ BAG, 500ML) [Suspect]
     Active Substance: VANCOMYCIN HYDROCHLORIDE
     Indication: SMOKING CESSATION THERAPY
     Dosage: ?          OTHER STRENGTH:3MG/0.9%, 500ML;?
     Dates: start: 20100108, end: 20191121

REACTIONS (5)
  - Rash [None]
  - Bradycardia [None]
  - Hypotension [None]
  - Tachycardia [None]
  - Respiratory depression [None]

NARRATIVE: CASE EVENT DATE: 20191121
